FAERS Safety Report 18910759 (Version 2)
Quarter: 2021Q2

REPORT INFORMATION
  Report Type: Report from Study
  Country: US (occurrence: US)
  Receive Date: 20210218
  Receipt Date: 20210427
  Transmission Date: 20210717
  Serious: Yes (Hospitalization)
  Sender: FDA-Public Use
  Company Number: US-MYLANLABS-2021M1009947

PATIENT
  Sex: Male
  Weight: 88.45 kg

DRUGS (9)
  1. BENZTROPINE                        /00012901/ [Suspect]
     Active Substance: BENZTROPINE
     Dosage: 2 MILLIGRAM, BID
     Dates: start: 20210126
  2. HALDOL [Concomitant]
     Active Substance: HALOPERIDOL
     Dosage: UNK
  3. ATIVAN [Concomitant]
     Active Substance: LORAZEPAM
     Dosage: UNK
  4. NORVASC [Concomitant]
     Active Substance: AMLODIPINE BESYLATE
     Dosage: UNK
  5. CLOZAPINE. [Suspect]
     Active Substance: CLOZAPINE
     Indication: PRODUCT USED FOR UNKNOWN INDICATION
     Dosage: 200 MILLIGRAM, BID
     Route: 048
     Dates: start: 1993
  6. BENZTROPINE                        /00012901/ [Suspect]
     Active Substance: BENZTROPINE
     Indication: PRODUCT USED FOR UNKNOWN INDICATION
     Dosage: 1 MILLIGRAM, BID
     Route: 048
     Dates: start: 20201027
  7. PRILOSEC [Concomitant]
     Active Substance: OMEPRAZOLE MAGNESIUM
     Dosage: UNK
  8. ZYPREXA [Concomitant]
     Active Substance: OLANZAPINE
     Dosage: UNK
  9. DEPAKOTE [Concomitant]
     Active Substance: DIVALPROEX SODIUM
     Dosage: UNK

REACTIONS (5)
  - Nausea [Unknown]
  - Faecaloma [Unknown]
  - Constipation [Unknown]
  - Vomiting [Unknown]
  - Fungal oesophagitis [Unknown]
